FAERS Safety Report 7611653-9 (Version None)
Quarter: 2011Q3

REPORT INFORMATION
  Report Type: 
  Country: None (occurrence: None)
  Receive Date: 20110715
  Receipt Date: 20110713
  Transmission Date: 20111222
  Serious: Yes (Hospitalization, Disabling)
  Sender: FDA-Public Use
  Company Number: GB-ROXANE LABORATORIES, INC.-2011-RO-00988RO

PATIENT
  Age: 58 Year
  Sex: Female

DRUGS (2)
  1. METHOTREXATE [Suspect]
     Indication: NON-HODGKIN'S LYMPHOMA
     Route: 037
  2. METHOTREXATE [Suspect]
     Route: 042

REACTIONS (2)
  - STATUS EPILEPTICUS [None]
  - LEUKOENCEPHALOPATHY [None]
